FAERS Safety Report 5381032-6 (Version None)
Quarter: 2007Q2

REPORT INFORMATION
  Report Type: 
  Country: None (occurrence: None)
  Receive Date: 20070629
  Receipt Date: 20061130
  Transmission Date: 20071010
  Serious: Yes (Hospitalization)
  Sender: FDA-Public Use
  Company Number: US200612000231

PATIENT
  Age: 71 Year
  Sex: Male

DRUGS (7)
  1. HUMALOG [Suspect]
     Indication: DIABETES MELLITUS
  2. HUMULIN N [Suspect]
     Indication: DIABETES MELLITUS
     Dates: end: 20061101
  3. HUMULIN R [Suspect]
     Indication: DIABETES MELLITUS
     Dates: end: 20061101
  4. LIPITOR [Concomitant]
  5. ATACAND [Concomitant]
  6. TOPROL-XL [Concomitant]
  7. ASPIRIN [Concomitant]

REACTIONS (4)
  - BLOOD GLUCOSE DECREASED [None]
  - BLOOD GLUCOSE INCREASED [None]
  - CORONARY ARTERY OCCLUSION [None]
  - DRUG INEFFECTIVE [None]
